FAERS Safety Report 8519686-5 (Version None)
Quarter: 2012Q3

REPORT INFORMATION
  Report Type: 
  Country: None (occurrence: None)
  Receive Date: 20120719
  Receipt Date: 20120625
  Transmission Date: 20120928
  Serious: Yes (Hospitalization)
  Sender: FDA-Public Use
  Company Number: FR-AMGEN-FRASP2012026961

PATIENT
  Age: 49 Year
  Sex: Female

DRUGS (11)
  1. MODANE                             /00288601/ [Concomitant]
     Dosage: UNK
  2. BROMAZEPAM [Concomitant]
     Dosage: UNK
  3. MOPRAL                             /00661201/ [Concomitant]
  4. ENBREL [Suspect]
     Indication: RHEUMATOID ARTHRITIS
     Dosage: UNK
     Route: 058
     Dates: start: 20100416, end: 20101201
  5. LEVOTHYROXINE SODIUM [Concomitant]
     Dosage: UNK
  6. MODANE                             /00288601/ [Concomitant]
     Dosage: UNK
  7. VITAMIN D [Concomitant]
     Dosage: UNK
  8. MABTHERA [Suspect]
     Indication: RHEUMATOID ARTHRITIS
     Dosage: UNK
     Route: 042
     Dates: start: 20081001, end: 20091201
  9. PREDNISONE TAB [Suspect]
     Indication: RHEUMATOID ARTHRITIS
     Dosage: 5 MG, 1X/DAY
     Route: 048
     Dates: start: 20101201
  10. MOPRAL                             /00661201/ [Concomitant]
     Dosage: UNK
  11. ECONAZOLE NITRATE [Concomitant]
     Dosage: UNK

REACTIONS (4)
  - LYMPHOPENIA [None]
  - HERPES ZOSTER [None]
  - IMMUNOSUPPRESSION [None]
  - MENINGORADICULITIS [None]
